FAERS Safety Report 11657894 (Version 2)
Quarter: 2015Q4

REPORT INFORMATION
  Report Type: Spontaneous
  Country: FR (occurrence: FR)
  Receive Date: 20151023
  Receipt Date: 20151113
  Transmission Date: 20160304
  Serious: Yes (Hospitalization)
  Sender: FDA-Public Use
  Company Number: FR-ASTRAZENECA-2015SF00927

PATIENT
  Age: 29456 Day
  Sex: Male

DRUGS (8)
  1. ISOPTINE [Concomitant]
     Active Substance: VERAPAMIL HYDROCHLORIDE
     Route: 048
     Dates: start: 20150926
  2. VENTOLINE [Concomitant]
     Active Substance: ALBUTEROL
     Route: 055
     Dates: start: 2005
  3. AGRASTAT [Suspect]
     Active Substance: TIROFIBAN HYDROCHLORIDE
     Indication: CORONARY ARTERY DISEASE
     Route: 042
     Dates: start: 20150926, end: 20150926
  4. LOVENOX [Suspect]
     Active Substance: ENOXAPARIN SODIUM
     Indication: ACUTE CORONARY SYNDROME
     Route: 058
     Dates: start: 20150926, end: 20150928
  5. KARDEGIC [Concomitant]
     Active Substance: ASPIRIN LYSINE
     Indication: ACUTE CORONARY SYNDROME
     Route: 048
     Dates: start: 20150926
  6. TAHOR [Concomitant]
     Active Substance: ATORVASTATIN CALCIUM
     Route: 048
     Dates: start: 20150926
  7. BRILIQUE [Suspect]
     Active Substance: TICAGRELOR
     Indication: ACUTE CORONARY SYNDROME
     Route: 048
     Dates: start: 20150926, end: 20150928
  8. PANTOPRAZOLE [Concomitant]
     Active Substance: PANTOPRAZOLE SODIUM
     Route: 048
     Dates: start: 20150926

REACTIONS (2)
  - Thrombocytopenia [Recovered/Resolved]
  - Coronary artery stenosis [Unknown]

NARRATIVE: CASE EVENT DATE: 20150926
